FAERS Safety Report 6184148-X (Version None)
Quarter: 2009Q2

REPORT INFORMATION
  Report Type: 
  Country: None (occurrence: None)
  Receive Date: 20090506
  Receipt Date: 20090424
  Transmission Date: 20091009
  Serious: Yes (Other)
  Sender: FDA-Public Use
  Company Number: 8037729

PATIENT
  Age: 6 Month
  Sex: Male
  Weight: 8.977 kg

DRUGS (4)
  1. KEPPRA [Suspect]
     Dosage: 1000 MG
  2. LAMOTRIGINE [Concomitant]
  3. FOLIC ACID [Concomitant]
  4. VITAMIN TAB [Concomitant]

REACTIONS (3)
  - CONGENITAL HYDRONEPHROSIS [None]
  - MATERNAL DRUGS AFFECTING FOETUS [None]
  - URETHRAL VALVES [None]
